FAERS Safety Report 11352549 (Version 1)
Quarter: 2015Q3

REPORT INFORMATION
  Report Type: Spontaneous
  Country: US (occurrence: US)
  Receive Date: 20150807
  Receipt Date: 20150807
  Transmission Date: 20151125
  Serious: No
  Sender: FDA-Public Use
  Company Number: US-JNJFOC-20150312169

PATIENT
  Age: 30 Year
  Sex: Male
  Weight: 79.38 kg

DRUGS (2)
  1. MENS ROGAINE EXTRA STRENGTH [Suspect]
     Active Substance: MINOXIDIL
     Indication: HAIR GROWTH ABNORMAL
     Dosage: HALF CAPFUL
     Route: 061
     Dates: end: 20150313
  2. MENS ROGAINE EXTRA STRENGTH [Suspect]
     Active Substance: MINOXIDIL
     Route: 061

REACTIONS (4)
  - Skin irritation [Not Recovered/Not Resolved]
  - Facial pain [Not Recovered/Not Resolved]
  - Ear disorder [Not Recovered/Not Resolved]
  - Pruritus [Not Recovered/Not Resolved]
